FAERS Safety Report 7170134-X (Version None)
Quarter: 2010Q4

REPORT INFORMATION
  Report Type: 
  Country: None (occurrence: None)
  Receive Date: 20101123
  Receipt Date: 20100816
  Transmission Date: 20110411
  Serious: No
  Sender: FDA-Public Use
  Company Number: 017223

PATIENT
  Age: 41 Year
  Sex: Female

DRUGS (1)
  1. CIMZIA [Suspect]
     Dosage: (400 MG 1X/2 WEEKS SUBCUTANEOUS)
     Route: 058

REACTIONS (2)
  - ALOPECIA [None]
  - ARTHRALGIA [None]
